FAERS Safety Report 5347823-2 (Version None)
Quarter: 2007Q2

REPORT INFORMATION
  Report Type: 
  Country: None (occurrence: None)
  Receive Date: 20070516
  Receipt Date: 20051110
  Transmission Date: 20071010
  Serious: Yes (Life-Threatening)
  Sender: FDA-Public Use
  Company Number: ZONI002233

PATIENT
  Age: 38 Year
  Sex: Female
  Weight: 61 kg

DRUGS (1)
  1. ZONEGRAN [Suspect]
     Indication: MIGRAINE
     Dosage: SEE IMAGE
     Route: 048

REACTIONS (1)
  - ATRIAL FIBRILLATION [None]
